FAERS Safety Report 7423569-1 (Version None)
Quarter: 2011Q2

REPORT INFORMATION
  Report Type: 
  Country: None (occurrence: None)
  Receive Date: 20110413
  Receipt Date: 20110413
  Transmission Date: 20111010
  Serious: Yes (Hospitalization)
  Sender: FDA-Public Use
  Company Number: None

PATIENT
  Age: 62 Year
  Sex: Male
  Weight: 97.7 kg

DRUGS (2)
  1. FLUOROURACIL [Suspect]
     Dosage: 8520 MG OTHER IV
     Route: 042
     Dates: start: 20101122, end: 20101123
  2. CISPLATIN [Suspect]
     Dosage: 500 ML OTHER IV
     Route: 042
     Dates: start: 20101122, end: 20101223

REACTIONS (3)
  - ODYNOPHAGIA [None]
  - RENAL FAILURE ACUTE [None]
  - DYSPHAGIA [None]
